FAERS Safety Report 17780733 (Version 1)
Quarter: 2020Q2

REPORT INFORMATION
  Report Type: Spontaneous
  Country: US (occurrence: US)
  Receive Date: 20200513
  Receipt Date: 20200513
  Transmission Date: 20200714
  Serious: Yes (Hospitalization)
  Sender: FDA-Public Use
  Company Number: None

PATIENT
  Age: 62 Year
  Sex: Male
  Weight: 100 kg

DRUGS (2)
  1. TOLTERODINE (TOLTERODINE TARTRATE 4MG CAP.SA) [Suspect]
     Active Substance: TOLTERODINE TARTRATE
     Indication: MICTURITION URGENCY
     Route: 048
     Dates: start: 20200311, end: 20200328
  2. AZELASTINE (AZELASTINE HCL 137MCG/SPRAY INHL,NASAL, 30ML) [Suspect]
     Active Substance: AZELASTINE HYDROCHLORIDE
     Indication: RHINITIS
     Dates: start: 20181119, end: 20200328

REACTIONS (2)
  - Constipation [None]
  - Faecaloma [None]

NARRATIVE: CASE EVENT DATE: 20200328
